FAERS Safety Report 19438269 (Version 1)
Quarter: 2021Q2

REPORT INFORMATION
  Report Type: Spontaneous
  Country: US (occurrence: US)
  Receive Date: 20210619
  Receipt Date: 20210619
  Transmission Date: 20210717
  Serious: Yes (Hospitalization, Other)
  Sender: FDA-Public Use
  Company Number: US-AUROBINDO-AUR-APL-2021-024805

PATIENT
  Age: 56 Year
  Sex: Male

DRUGS (5)
  1. LITHIUM CARBONATE. [Suspect]
     Active Substance: LITHIUM CARBONATE
     Indication: BIPOLAR DISORDER
     Dosage: 1200 MILLIGRAM, DAILY
     Route: 065
  2. LISINOPRIL. [Concomitant]
     Active Substance: LISINOPRIL
     Indication: PRODUCT USED FOR UNKNOWN INDICATION
     Dosage: 20 MILLIGRAM, ONCE A DAY
     Route: 065
  3. QUETIAPINE. [Concomitant]
     Active Substance: QUETIAPINE
     Indication: PRODUCT USED FOR UNKNOWN INDICATION
     Dosage: 300 MILLIGRAM, ONCE A DAY AT BED TIME
     Route: 065
  4. IBUPROFEN. [Suspect]
     Active Substance: IBUPROFEN
     Indication: ARTHRALGIA
     Dosage: UNK
     Route: 065
  5. RISPERIDONE. [Concomitant]
     Active Substance: RISPERIDONE
     Indication: PRODUCT USED FOR UNKNOWN INDICATION
     Dosage: 1 MILLIGRAM, TWO TIMES A DAY
     Route: 065

REACTIONS (9)
  - Ataxia [Not Recovered/Not Resolved]
  - Drug interaction [Unknown]
  - Dysmetria [Unknown]
  - Neurotoxicity [Unknown]
  - Toxicity to various agents [Recovered/Resolved]
  - Tremor [Unknown]
  - Dysarthria [Not Recovered/Not Resolved]
  - Confusional state [Recovered/Resolved]
  - Diarrhoea [Unknown]
